FAERS Safety Report 7053917-6 (Version None)
Quarter: 2010Q4

REPORT INFORMATION
  Report Type: 
  Country: None (occurrence: None)
  Receive Date: 20101014
  Receipt Date: 20100930
  Transmission Date: 20110411
  Serious: Yes (Hospitalization)
  Sender: FDA-Public Use
  Company Number: 1000016614

PATIENT
  Age: 50 Year
  Sex: Female

DRUGS (7)
  1. ESCITALOPRAM [Suspect]
     Dosage: ORAL
     Route: 048
  2. RHINADVIL (CO-ADVIL) (TABLETS) [Suspect]
     Indication: HEADACHE
     Dosage: 3 OR 4 DOSAGE FORMS, ORAL
     Route: 048
     Dates: start: 20100204, end: 20100205
  3. CEFUROXIME [Suspect]
     Indication: SINUSITIS
     Dosage: ORAL
     Route: 048
     Dates: start: 20100204
  4. BUDESONIDE [Suspect]
     Indication: SINUSITIS
     Dosage: RESPIRATORY (INHALATION)
     Route: 055
     Dates: start: 20100204
  5. IBUPROFEN [Suspect]
     Indication: SINUSITIS
     Dosage: ORAL
     Route: 048
     Dates: start: 20100204, end: 20100205
  6. PARACETAMOL (PARACETAMOL) (PARACETAMOL) [Concomitant]
  7. DUPHASTON (DYDROGESTERONE) (TABLETS) (DYDROGESTERONE) [Concomitant]

REACTIONS (3)
  - ABNORMAL BEHAVIOUR [None]
  - DISORIENTATION [None]
  - THROMBOCYTOPENIA [None]
